FAERS Safety Report 4668451-8 (Version None)
Quarter: 2005Q2

REPORT INFORMATION
  Report Type: 
  Country: None (occurrence: None)
  Receive Date: 20050519
  Receipt Date: 20050510
  Transmission Date: 20051028
  Serious: Yes (Other)
  Sender: FDA-Public Use
  Company Number: 200511970BCC

PATIENT
  Age: 79 Year
  Sex: Female
  Weight: 61.2356 kg

DRUGS (9)
  1. ASPIRIN [Suspect]
     Indication: MYOCARDIAL INFARCTION
     Dosage: ORAL
     Route: 048
  2. ASPIRIN [Suspect]
     Indication: PROPHYLAXIS
     Dosage: ORAL
     Route: 048
  3. ONE A DAY WOMEN'S [Suspect]
     Indication: VITAMIN A
     Dosage: ORAL
     Route: 048
     Dates: start: 19950101
  4. CALTRATE [Concomitant]
  5. GNC VITAMIN D [Concomitant]
  6. NATURAL POTASSIUM GLUCONATE [Concomitant]
  7. ENZYMEDICA [Concomitant]
  8. SPRING VALLEY FISH OIL [Concomitant]
  9. NATURE MADE B12 [Concomitant]

REACTIONS (2)
  - BLOOD PRESSURE INCREASED [None]
  - HYDROTHORAX [None]
